FAERS Safety Report 5892596-8 (Version None)
Quarter: 2008Q3

REPORT INFORMATION
  Report Type: 
  Country: None (occurrence: None)
  Receive Date: 20080923
  Receipt Date: 20080911
  Transmission Date: 20090109
  Serious: Yes (Hospitalization)
  Sender: FDA-Public Use
  Company Number: SE-ROCHE-585909

PATIENT

DRUGS (10)
  1. CELLCEPT [Suspect]
     Indication: IMMUNOSUPPRESSION
     Dosage: DOSAGE REGIMAN: DAILY STRENGTH: 500+500 MG
     Route: 048
     Dates: start: 20040316
  2. GLIPIZID [Concomitant]
     Indication: DIABETES MELLITUS
     Dosage: DOSAGE REGIMEN: DAILY STRENGTH: 5+5+2.5 MG INDICATION: DIABETES M
     Route: 048
  3. PREDNISOLONE [Concomitant]
     Indication: IMMUNOSUPPRESSION
     Dosage: DOSAGE REGIMEN: DAILY
     Route: 048
     Dates: start: 20031218
  4. TACROLIMUS [Concomitant]
     Indication: IMMUNOSUPPRESSION
     Dosage: DOSAGE REGIMEN: DAILY STRENGTH: 2+2 MG
     Route: 048
     Dates: start: 20061009
  5. SODIUM POLYSTYRENE SULFONATE [Concomitant]
     Route: 048
     Dates: start: 20080409
  6. METOPROLOL TARTRATE [Concomitant]
     Indication: HYPERTENSION
     Route: 048
     Dates: start: 20010628
  7. ACETYLSALICYLIC ACID SRT [Concomitant]
     Indication: ANTICOAGULANT THERAPY
     Route: 048
  8. DARBEPOETIN ALFA [Concomitant]
     Dosage: DRUG: DARBEPOETIN
     Route: 058
     Dates: start: 20050428
  9. FLUVASTATIN [Concomitant]
     Route: 048
     Dates: start: 20060926
  10. LISINOPRIL [Concomitant]
     Indication: HYPERTENSION
     Route: 048
     Dates: start: 20060926

REACTIONS (1)
  - TENDON RUPTURE [None]
